FAERS Safety Report 8387718-3 (Version None)
Quarter: 2012Q2

REPORT INFORMATION
  Report Type: 
  Country: None (occurrence: None)
  Receive Date: 20120525
  Receipt Date: 20120515
  Transmission Date: 20120825
  Serious: Yes (Other)
  Sender: FDA-Public Use
  Company Number: US-ELI_LILLY_AND_COMPANY-US201205006075

PATIENT
  Age: 69 Year
  Sex: Female

DRUGS (3)
  1. FORTEO [Suspect]
     Indication: OSTEOPOROSIS
     Dosage: 20 UG, QD
     Dates: start: 20110501, end: 20110801
  2. PRAVASTATIN [Concomitant]
     Dosage: 40 MG, QD
  3. VITAMIN TAB [Concomitant]
     Dosage: UNK, QD

REACTIONS (1)
  - BREAST CANCER [None]
